FAERS Safety Report 6671512-5 (Version None)
Quarter: 2010Q2

REPORT INFORMATION
  Report Type: 
  Country: None (occurrence: None)
  Receive Date: 20100407
  Receipt Date: 20100330
  Transmission Date: 20101027
  Serious: Yes (Hospitalization)
  Sender: FDA-Public Use
  Company Number: GXBR2010US00619

PATIENT
  Sex: Male
  Weight: 86.168 kg

DRUGS (1)
  1. TESTOSTERONE CYPIONATE INJECTABLE (NGX) [Suspect]
     Indication: BLOOD TESTOSTERONE DECREASED
     Dosage: 100 MG, QW
     Route: 030

REACTIONS (8)
  - ABSCESS DRAINAGE [None]
  - ADMINISTRATION SITE ABSCESS [None]
  - CELLULITIS [None]
  - HYPERHIDROSIS [None]
  - INJECTION SITE PAIN [None]
  - INJECTION SITE SWELLING [None]
  - PYREXIA [None]
  - STAPHYLOCOCCAL INFECTION [None]
